FAERS Safety Report 18673847 (Version 7)
Quarter: 2022Q3

REPORT INFORMATION
  Report Type: Spontaneous
  Country: US (occurrence: US)
  Receive Date: 20201228
  Receipt Date: 20220929
  Transmission Date: 20221026
  Serious: No
  Sender: FDA-Public Use
  Company Number: US-PFIZER INC-2020514340

PATIENT
  Age: 52 Year
  Sex: Female
  Weight: 117.91 kg

DRUGS (10)
  1. DOCETAXEL [Suspect]
     Active Substance: DOCETAXEL
     Indication: Breast cancer stage I
     Dosage: UNK
     Dates: start: 20181127, end: 20181218
  2. DOCETAXEL [Suspect]
     Active Substance: DOCETAXEL
     Dosage: 141.6 MG, CYCLIC (06 CYCLES FOR EVERY THREE WEEKS)
     Dates: start: 20190108, end: 20190219
  3. DOCETAXEL [Suspect]
     Active Substance: DOCETAXEL
     Dosage: UNK, CYCLIC (EVERY THREE WEEKS FOR 3 CYCLES)
  4. PARAPLATIN [Concomitant]
     Active Substance: CARBOPLATIN
     Indication: Breast cancer stage I
     Dosage: 772 MG
  5. HERCEPTIN [Concomitant]
     Active Substance: TRASTUZUMAB
     Indication: Breast cancer stage I
     Dosage: 709 MG
  6. PEPCID [Concomitant]
     Active Substance: FAMOTIDINE
     Dosage: UNK
  7. ZOFRAN [Concomitant]
     Active Substance: ONDANSETRON HYDROCHLORIDE
     Dosage: UNK
  8. BENADRYL [Concomitant]
     Active Substance: DIPHENHYDRAMINE HYDROCHLORIDE
     Dosage: UNK
  9. DECADRON [Concomitant]
     Active Substance: DEXAMETHASONE
     Dosage: UNK
  10. NEULASTA [Concomitant]
     Active Substance: PEGFILGRASTIM
     Dosage: UNK

REACTIONS (10)
  - Eye injury [Unknown]
  - Blepharospasm [Unknown]
  - Vision blurred [Unknown]
  - Lacrimation increased [Unknown]
  - Lacrimal structure injury [Unknown]
  - Madarosis [Not Recovered/Not Resolved]
  - Alopecia [Not Recovered/Not Resolved]
  - Hair texture abnormal [Not Recovered/Not Resolved]
  - Hair disorder [Not Recovered/Not Resolved]
  - Hair colour changes [Not Recovered/Not Resolved]

NARRATIVE: CASE EVENT DATE: 20190601
